FAERS Safety Report 5919682-8 (Version None)
Quarter: 2008Q4

REPORT INFORMATION
  Report Type: 
  Country: None (occurrence: None)
  Receive Date: 20081010
  Receipt Date: 20081007
  Transmission Date: 20090506
  Serious: Yes (Hospitalization)
  Sender: FDA-Public Use
  Company Number: THQ2008A02037

PATIENT
  Age: 59 Year
  Sex: Male

DRUGS (6)
  1. ACTOS [Suspect]
     Indication: TYPE 2 DIABETES MELLITUS
     Dosage: 30 MG
     Route: 048
     Dates: start: 19990101, end: 20070401
  2. METFORMINE (MERFORMIN HYDROCHLORIDE) [Concomitant]
  3. HMG COA REDUCTASE INHIBITORS [Concomitant]
  4. SULFONILUREA [Concomitant]
  5. UNSPECIFIED ANTIPLATELET DRUG [Concomitant]
  6. TIABENDAZOLE [Concomitant]

REACTIONS (1)
  - MYOCARDIAL INFARCTION [None]
